FAERS Safety Report 4553433-7 (Version None)
Quarter: 2005Q1

REPORT INFORMATION
  Report Type: 
  Country: None (occurrence: None)
  Receive Date: 20050112
  Receipt Date: 20050107
  Transmission Date: 20050727
  Serious: Yes (Hospitalization)
  Sender: FDA-Public Use
  Company Number: KII-2005-0014538

PATIENT
  Age: 14 Month
  Sex: Male

DRUGS (1)
  1. MORPHINE SULFATE [Suspect]
     Dosage: ORAL
     Route: 048
     Dates: start: 20041207, end: 20041207

REACTIONS (3)
  - ACCIDENTAL EXPOSURE [None]
  - ANALGESIC DRUG LEVEL ABOVE THERAPEUTIC [None]
  - SOMNOLENCE [None]
